FAERS Safety Report 8814525 (Version 1)
Quarter: 2012Q4

REPORT INFORMATION
  Report Type: Spontaneous
  Country: US (occurrence: None)
  Receive Date: 20120925
  Receipt Date: 20120925
  Transmission Date: 20130627
  Serious: Yes (Other)
  Sender: FDA-Public Use
  Company Number: ACO_32000_2012

PATIENT
  Age: 47 Year
  Sex: Male
  Weight: 97.5 kg

DRUGS (10)
  1. AMPYRA [Suspect]
     Indication: GAIT DISTURBANCE
     Route: 048
     Dates: start: 201208, end: 201208
  2. EFFEXOR (VENLAFAXINE HYDROCHLORIDE) UNKNOWN [Concomitant]
  3. XANAX (ALPRAZOLAM) [Concomitant]
  4. LORTAB (HYDROCODONE BITARTRATE, PROMETHAZINE HYDROCHLORIDE) [Concomitant]
  5. BACLOFEN (BACLOFEN) [Concomitant]
  6. VITAMIN D3 (COLECALCIFEROL) [Concomitant]
  7. FISH OIL (FISH OIL) [Concomitant]
  8. MAGNESIUM (MANGESIUM) [Concomitant]
  9. VITAMIN B12 (CYANOCOBALAMIN) [Concomitant]
  10. ONE-A-DAY MEN^S (ASCORBIC ACID, CHROMIUM, COOPER, CYANOCOBALAMIN, FOLIC ACID, IODINE, MAGNESIUM, MANGANESE, MOLYBDENUM, NICOTINE ACID, PANTOTHENIC ACID, POTASSIUM, PYRIDOXINE HYDROCHLORIDE, RETINOL, RIBOFLAVIN, SELENIUM, THIAMINE, TOCOPHEROL, VITAMIN D NOS, ZINC) [Concomitant]

REACTIONS (6)
  - Convulsion [None]
  - Epistaxis [None]
  - Tongue biting [None]
  - Tremor [None]
  - Panic disorder [None]
  - Hypoaesthesia oral [None]
